FAERS Safety Report 20607922 (Version 1)
Quarter: 2022Q1

REPORT INFORMATION
  Report Type: Spontaneous
  Country: US (occurrence: US)
  Receive Date: 20220317
  Receipt Date: 20220317
  Transmission Date: 20220423
  Serious: No
  Sender: FDA-Public Use
  Company Number: US-GW PHARMA-202203USGW01306

PATIENT
  Sex: Male

DRUGS (1)
  1. EPIDIOLEX [Suspect]
     Active Substance: CANNABIDIOL
     Indication: Lennox-Gastaut syndrome
     Dosage: 100 MILLIGRAM, BID (DOSE HAS BEEN INCREASED TO 2 ML TWICE DAILY BUT NOT YET SHIPPED TO PATIENT; UNKN
     Route: 048
     Dates: start: 202112

REACTIONS (2)
  - Lethargy [Unknown]
  - Decreased appetite [Unknown]
